FAERS Safety Report 17305285 (Version 1)
Quarter: 2020Q1

REPORT INFORMATION
  Report Type: Spontaneous
  Country: US (occurrence: US)
  Receive Date: 20200123
  Receipt Date: 20200123
  Transmission Date: 20200409
  Serious: No
  Sender: FDA-Public Use
  Company Number: US-MYLANLABS-2020M1006027

PATIENT
  Sex: Male
  Weight: 98 kg

DRUGS (7)
  1. GLATIRAMER ACETATE INJECTION [Suspect]
     Active Substance: GLATIRAMER ACETATE
     Indication: RELAPSING-REMITTING MULTIPLE SCLEROSIS
     Dosage: UNK UNK, 3XW
  2. WELLBUTRIN [Concomitant]
     Active Substance: BUPROPION HYDROCHLORIDE
  3. SIMVASTATIN. [Concomitant]
     Active Substance: SIMVASTATIN
  4. BUTALBITAL [Concomitant]
     Active Substance: BUTALBITAL
  5. GABAPENTIN. [Concomitant]
     Active Substance: GABAPENTIN
  6. TIMOLOL. [Concomitant]
     Active Substance: TIMOLOL
  7. SERTRALINE [Concomitant]
     Active Substance: SERTRALINE HYDROCHLORIDE

REACTIONS (1)
  - Injection site paraesthesia [Unknown]
